FAERS Safety Report 7672327-1 (Version None)
Quarter: 2011Q3

REPORT INFORMATION
  Report Type: 
  Country: None (occurrence: None)
  Receive Date: 20110809
  Receipt Date: 20110804
  Transmission Date: 20111222
  Serious: Yes (Other)
  Sender: FDA-Public Use
  Company Number: GB-PFIZER INC-2011036280

PATIENT
  Age: 29 Year
  Sex: Female
  Weight: 50 kg

DRUGS (3)
  1. PHENYTOIN SODIUM [Suspect]
     Dosage: 180 MG, 2X/DAY
     Route: 048
  2. LANSOPRAZOLE [Concomitant]
     Indication: RETT'S DISORDER
     Dosage: 30 MG, 2X/DAY
     Route: 048
  3. PHENYTOIN SODIUM [Suspect]
     Indication: RETT'S DISORDER
     Dosage: 150 MG

REACTIONS (4)
  - SWELLING [None]
  - ENLARGED CLITORIS [None]
  - GINGIVAL HYPERPLASIA [None]
  - ORAL PAIN [None]
